FAERS Safety Report 21871224 (Version 1)
Quarter: 2023Q1

REPORT INFORMATION
  Report Type: Spontaneous
  Country: US (occurrence: None)
  Receive Date: 20230113
  Receipt Date: 20230113
  Transmission Date: 20230417
  Serious: Yes (Death)
  Sender: FDA-Public Use
  Company Number: None

PATIENT
  Age: 62 Year
  Sex: Male
  Weight: 102.5 kg

DRUGS (11)
  1. REPATHA [Suspect]
     Active Substance: EVOLOCUMAB
     Indication: Hyperlipidaemia
     Dosage: 140 MG Q 2 WKS SUBCUTANEOUS
     Route: 058
     Dates: start: 20191210, end: 20230112
  2. ALBUTEROL HFA INH [Concomitant]
  3. ALDACTONE [Concomitant]
     Active Substance: SPIRONOLACTONE
  4. ASPIRIN EC LOW DOSE 81MG [Concomitant]
  5. BUMEX [Concomitant]
     Active Substance: BUMETANIDE
  6. FLUTICASONE NASAL SP [Concomitant]
  7. HUMALOG [Concomitant]
     Active Substance: INSULIN LISPRO
  8. LANTUS SOLOSTAR [Concomitant]
     Active Substance: INSULIN GLARGINE
  9. LEVOTHYROXINE SOD [Concomitant]
  10. TOPROL XL [Concomitant]
     Active Substance: METOPROLOL SUCCINATE
  11. TYLENOL LIQUID GEL [Concomitant]

REACTIONS (1)
  - Death [None]
